FAERS Safety Report 7518022-0 (Version None)
Quarter: 2011Q2

REPORT INFORMATION
  Report Type: 
  Country: None (occurrence: None)
  Receive Date: 20110602
  Receipt Date: 20110523
  Transmission Date: 20111010
  Serious: Yes (Other)
  Sender: FDA-Public Use
  Company Number: US-JNJFOC-20110511688

PATIENT
  Sex: Female
  Weight: 78.02 kg

DRUGS (7)
  1. SYNTHROID [Concomitant]
     Indication: HYPOTHYROIDISM
     Route: 048
     Dates: start: 19500101
  2. RIMSO-50 [Concomitant]
     Indication: CYSTITIS INTERSTITIAL
     Route: 065
  3. DURAGESIC-100 [Suspect]
     Route: 062
     Dates: start: 20101101
  4. DURAGESIC-100 [Suspect]
     Indication: PAIN
     Route: 062
     Dates: start: 19920101
  5. PREMARIN [Concomitant]
     Indication: PAIN
     Route: 065
  6. ATERAX [Concomitant]
     Indication: CYSTITIS INTERSTITIAL
     Route: 065
     Dates: start: 19990101
  7. OXYTROL TRANSDERMAL PATCH [Concomitant]
     Indication: PAIN
     Route: 062

REACTIONS (9)
  - SYSTEMIC LUPUS ERYTHEMATOSUS [None]
  - PYREXIA [None]
  - BLADDER PAIN [None]
  - TACHYCARDIA [None]
  - BLOOD PRESSURE ABNORMAL [None]
  - MIGRAINE [None]
  - POLLAKIURIA [None]
  - DYSPNOEA [None]
  - FEELING ABNORMAL [None]
